FAERS Safety Report 19566929 (Version 8)
Quarter: 2022Q3

REPORT INFORMATION
  Report Type: Spontaneous
  Country: JP (occurrence: JP)
  Receive Date: 20210716
  Receipt Date: 20220901
  Transmission Date: 20221027
  Serious: Yes (Hospitalization, Other)
  Sender: FDA-Public Use
  Company Number: JP-GLAXOSMITHKLINE-JP2021JPN151219

PATIENT

DRUGS (29)
  1. BENLYSTA [Suspect]
     Active Substance: BELIMUMAB
     Indication: Systemic lupus erythematosus
     Dosage: UNK, WE
     Route: 058
     Dates: start: 20190502, end: 20191219
  2. NEXIUM [Concomitant]
     Active Substance: ESOMEPRAZOLE MAGNESIUM
     Dosage: 20 MG, QD (30 MINUTES AFTER BREAKFAST)
     Dates: start: 20191219
  3. IMURAN [Concomitant]
     Active Substance: AZATHIOPRINE
     Dosage: 50 MG, QD (30 MINUTES AFTER BREAKFAST)
     Dates: start: 20191219
  4. PREDONINE [Concomitant]
     Active Substance: PREDNISOLONE
     Dosage: 10 MG, QD (30 MINUTES AFTER BREAKFAST)
     Dates: start: 20191219
  5. PREDNISOLONE [Concomitant]
     Active Substance: PREDNISOLONE
     Dosage: 2 MG, QD (30 MINUTES AFTER BREAKFAST)
     Dates: start: 20191219
  6. ASPARA-CA TABLETS [Concomitant]
     Dosage: 200 MG, TID (30 MINUTES AFTER BREAKFAST, LUNCH AND DINNER)
     Dates: start: 20191219
  7. TENORMIN TABLETS [Concomitant]
     Dosage: 25 MG, QD (30 MINUTES AFTER BREAKFAST)
     Dates: start: 20191219
  8. EDOXABAN TOSYLATE [Concomitant]
     Active Substance: EDOXABAN TOSYLATE
     Dosage: 30 MG, QD (30 MINUTES AFTER BREAKFAST)
     Dates: start: 20191219
  9. REBAMIPIDE [Concomitant]
     Active Substance: REBAMIPIDE
     Dosage: 100 MG, TID (30 MINUTES AFTER BREAKFAST, LUNCH AND DINNER)
     Dates: start: 20191219
  10. KETOPROFEN TAPE [Concomitant]
     Indication: Pain
     Dosage: 40 MG, 1D (ATTACH)
     Dates: start: 20191219
  11. ATORVASTATIN OD TABLETS [Concomitant]
     Dosage: 10 MG, QD (30 MINUTES AFTER BREAKFAST)
     Dates: start: 20191219
  12. EDIROL CAPSULE [Concomitant]
     Dosage: 0.75 ?G, QD (30 MINUTES AFTER BREAKFAST)
     Dates: start: 20191219
  13. PLAQUENIL TABLETS (HYDROXYCHLOROQUINE SULFATE) [Concomitant]
     Dosage: 200 MG, QOD (30 MINUTES AFTER BREAKFAST, ALTERNATING 1 TABLET ONCE DAILY AND 2 TABLETS ONCE DAILY)
     Dates: start: 20191219
  14. PLAQUENIL TABLETS (HYDROXYCHLOROQUINE SULFATE) [Concomitant]
     Dosage: 400 MG, QOD (30 MINUTES AFTER BREAKFAST, ALTERNATING 1 TABLET ONCE DAILY AND 1 TABLET DAILY)
     Dates: start: 20191219
  15. BUSCOPAN TABLETS [Concomitant]
     Indication: Abdominal pain
     Dosage: 10 MG
     Dates: start: 20191219
  16. LOXOPROFEN SODIUM DIHYDRATE [Concomitant]
     Active Substance: LOXOPROFEN SODIUM DIHYDRATE
     Indication: Pain
     Dosage: 60 MG
     Dates: start: 20191219
  17. SM [Concomitant]
     Dosage: 1.3 MG, TID (30 MINUTES AFTER BREAKFAST, LUNCH AND DINNER)
     Dates: start: 20191219
  18. HIRUDOID LOTION [Concomitant]
     Dosage: UNK, QD (APPLY)
     Dates: start: 20191219
  19. CELECOX TABLETS [Concomitant]
     Indication: Pain
     Dosage: 200 MG
     Dates: start: 20191219
  20. TRAVELMIN (DIPHENHYDRAMINE SALICYLATE + DIPROPHYLLINE) [Concomitant]
     Indication: Dizziness
     Dosage: 1 DF
     Dates: start: 20191219
  21. LAMISIL SOLUTION [Concomitant]
     Dosage: UNK UNK, QD (APPLY)
     Dates: start: 20191219
  22. FELBINAC [Concomitant]
     Active Substance: FELBINAC
     Dosage: UNK, BID (INFRICTION)
     Dates: start: 20191219
  23. SUCRALFATE [Concomitant]
     Active Substance: SUCRALFATE
     Dosage: 1 DF, TID (30 MINUTES AFTER BREAKFAST, LUNCH AND DINNER)
     Dates: start: 20191219
  24. EPERISONE HYDROCHLORIDE [Concomitant]
     Active Substance: EPERISONE HYDROCHLORIDE
     Dosage: 50 MG, TID (30 MINUTES AFTER BREAKFAST, LUNCH AND DINNER)
     Dates: start: 20191219
  25. SODIUM GUALENATE MONOHYDRATE [Concomitant]
     Active Substance: SODIUM GUALENATE MONOHYDRATE
     Dosage: UNK, TID
     Route: 002
     Dates: start: 20191219
  26. LEVOFLOXACIN [Concomitant]
     Active Substance: LEVOFLOXACIN
     Dosage: UNK, QID (BOTH EYES)
     Route: 047
     Dates: start: 20191219
  27. LUNESTA TABLETS [Concomitant]
     Dosage: 1 MG, QD (BEFORE GOING TO SLEEP)
     Dates: start: 20191223
  28. LORAZEPAM [Concomitant]
     Active Substance: LORAZEPAM
     Indication: Restlessness
     Dosage: 1 MG
     Dates: start: 20191223
  29. EFFEXOR XR [Concomitant]
     Active Substance: VENLAFAXINE HYDROCHLORIDE
     Dosage: 150 MG, QD (30 MINUTES AFTER DINNER)
     Dates: start: 20191223

REACTIONS (1)
  - Breast cancer [Not Recovered/Not Resolved]

NARRATIVE: CASE EVENT DATE: 20191219
